FAERS Safety Report 12403183 (Version 2)
Quarter: 2016Q2

REPORT INFORMATION
  Report Type: Spontaneous
  Country: US (occurrence: US)
  Receive Date: 20160525
  Receipt Date: 20160603
  Transmission Date: 20160815
  Serious: Yes (Hospitalization, Other)
  Sender: FDA-Public Use
  Company Number: US-GLENMARK PHARMACEUTICALS INC, USA.-2016GMK022991

PATIENT
  Age: 50 Year
  Sex: Female

DRUGS (6)
  1. EPINEPHRINE. [Concomitant]
     Active Substance: EPINEPHRINE
     Indication: HYPOTENSION
     Dosage: UNK
  2. NOREPINEPHRINE [Concomitant]
     Active Substance: NOREPINEPHRINE\NOREPINEPHRINE BITARTRATE
     Indication: HYPOTENSION
     Dosage: UNK
  3. CITALOPRAM HYDROBROMIDE. [Suspect]
     Active Substance: CITALOPRAM HYDROBROMIDE
     Indication: DEPRESSION
     Dosage: 20 MG, QD
     Route: 048
     Dates: start: 20150317
  4. METHYLENE BLUE. [Interacting]
     Active Substance: METHYLENE BLUE
     Indication: VASOPLEGIA SYNDROME
     Dosage: 2 MG/KG, UNK
     Route: 040
     Dates: start: 20150318
  5. METHYLENE BLUE. [Interacting]
     Active Substance: METHYLENE BLUE
     Dosage: 0.5MG/KG/HR
     Route: 042
  6. MILRINONE [Concomitant]
     Active Substance: MILRINONE
     Indication: HYPOTENSION
     Dosage: UNK

REACTIONS (2)
  - Drug interaction [Recovered/Resolved]
  - Serotonin syndrome [Recovered/Resolved]

NARRATIVE: CASE EVENT DATE: 20150318
